FAERS Safety Report 18922809 (Version 1)
Quarter: 2021Q1

REPORT INFORMATION
  Report Type: Spontaneous
  Country: US (occurrence: US)
  Receive Date: 20210222
  Receipt Date: 20210222
  Transmission Date: 20210420
  Serious: Yes (Other)
  Sender: FDA-Public Use
  Company Number: None

PATIENT
  Age: 60 Year
  Sex: Female
  Weight: 90 kg

DRUGS (7)
  1. VALSARTAN. [Suspect]
     Active Substance: VALSARTAN
     Indication: HYPERTENSION
     Route: 048
     Dates: start: 20210218, end: 20210221
  2. ALPRAZOLAM. [Concomitant]
     Active Substance: ALPRAZOLAM
  3. ASMANEX [Concomitant]
     Active Substance: MOMETASONE FUROATE
  4. ALBUTEROL. [Concomitant]
     Active Substance: ALBUTEROL
  5. BUSPIRONE [Concomitant]
     Active Substance: BUSPIRONE HYDROCHLORIDE
  6. FIORICET [Concomitant]
     Active Substance: ACETAMINOPHEN\BUTALBITAL\CAFFEINE
  7. CHOLECALCIFEROL [Concomitant]
     Active Substance: CHOLECALCIFEROL

REACTIONS (7)
  - Flushing [None]
  - Headache [None]
  - Swollen tongue [None]
  - Product substitution issue [None]
  - Dizziness [None]
  - Blood pressure increased [None]
  - Chest discomfort [None]

NARRATIVE: CASE EVENT DATE: 20210221
